FAERS Safety Report 16865196 (Version 1)
Quarter: 2019Q3

REPORT INFORMATION
  Report Type: Spontaneous
  Country: KR (occurrence: KR)
  Receive Date: 20190930
  Receipt Date: 20190930
  Transmission Date: 20191005
  Serious: Yes (Hospitalization)
  Sender: FDA-Public Use
  Company Number: KR-SNT-2019-000003

PATIENT
  Age: 86 Year
  Sex: Female
  Weight: 40 kg

DRUGS (2)
  1. MEMANTINE. [Suspect]
     Active Substance: MEMANTINE
     Indication: DEPRESSION
  2. BUPROPION. [Suspect]
     Active Substance: BUPROPION
     Indication: DEPRESSION

REACTIONS (1)
  - Myoclonus [Recovered/Resolved]
